FAERS Safety Report 10313336 (Version 2)
Quarter: 2014Q3

REPORT INFORMATION
  Report Type: Spontaneous
  Country: BR (occurrence: None)
  Receive Date: 20140716
  Receipt Date: 20140818
  Transmission Date: 20150326
  Serious: Yes (Other)
  Sender: FDA-Public Use
  Company Number: 2014-002069

PATIENT
  Age: 46 Year
  Sex: Female
  Weight: 77 kg

DRUGS (4)
  1. ENABLEX [Suspect]
     Active Substance: DARIFENACIN\DARIFENACIN HYDROBROMIDE
     Indication: HYPERTONIC BLADDER
     Dosage: 15 MG AT NIGHT, ORAL
     Route: 048
     Dates: start: 201405, end: 20140706
  2. LEVOID (LEVOTHYROXINE SODIUM) [Concomitant]
  3. AMITRIPTYLINE [Concomitant]
     Active Substance: AMITRIPTYLINE
  4. ENABLEX [Suspect]
     Active Substance: DARIFENACIN\DARIFENACIN HYDROBROMIDE
     Indication: CYSTITIS INTERSTITIAL
     Dosage: 15 MG AT NIGHT, ORAL
     Route: 048
     Dates: start: 201405, end: 20140706

REACTIONS (7)
  - Oropharyngeal pain [None]
  - Dysphonia [None]
  - Gastrooesophageal reflux disease [None]
  - Condition aggravated [None]
  - Dry eye [None]
  - Dry mouth [None]
  - Dysphagia [None]

NARRATIVE: CASE EVENT DATE: 201405
